FAERS Safety Report 20707909 (Version 1)
Quarter: 2022Q2

REPORT INFORMATION
  Report Type: Spontaneous
  Country: BR (occurrence: BR)
  Receive Date: 20220414
  Receipt Date: 20220414
  Transmission Date: 20220721
  Serious: Yes (Life-Threatening, Other)
  Sender: FDA-Public Use
  Company Number: BR-SUN PHARMACEUTICAL INDUSTRIES LTD-2022R1-333043

PATIENT
  Age: 40 Year
  Sex: Female

DRUGS (1)
  1. DEXMEDETOMIDINE [Suspect]
     Active Substance: DEXMEDETOMIDINE
     Indication: COVID-19 pneumonia
     Dosage: UNK (CONTINUOUS INFUSION)
     Route: 065

REACTIONS (2)
  - Cardiac arrest [Recovered/Resolved]
  - Syncope [Recovered/Resolved]
